FAERS Safety Report 5789050-0 (Version None)
Quarter: 2008Q2

REPORT INFORMATION
  Report Type: 
  Country: None (occurrence: None)
  Receive Date: 20080626
  Receipt Date: 20080624
  Transmission Date: 20081010
  Serious: Yes (Hospitalization)
  Sender: FDA-Public Use
  Company Number: B0524863A

PATIENT
  Age: 82 Year
  Sex: Male

DRUGS (8)
  1. CARVEDILOL [Suspect]
     Route: 065
  2. WARFARIN SODIUM [Concomitant]
     Indication: DRUG USE FOR UNKNOWN INDICATION
     Route: 065
  3. AVODART [Concomitant]
     Route: 065
  4. PROPAVAN [Concomitant]
     Route: 065
  5. IMPUGAN [Concomitant]
     Route: 065
  6. LEVOTHYROXINE SODIUM [Concomitant]
     Route: 065
  7. OXASCAND [Concomitant]
     Route: 065
  8. TRIOBE [Concomitant]
     Route: 065

REACTIONS (8)
  - ANAEMIA [None]
  - ATRIAL FIBRILLATION [None]
  - CHEST DISCOMFORT [None]
  - HEART RATE INCREASED [None]
  - HYPOKALAEMIA [None]
  - HYPONATRAEMIA [None]
  - VENTRICULAR EXTRASYSTOLES [None]
  - VENTRICULAR TACHYCARDIA [None]
